FAERS Safety Report 21991524 (Version 4)
Quarter: 2023Q1

REPORT INFORMATION
  Report Type: Spontaneous
  Country: US (occurrence: US)
  Receive Date: 20230214
  Receipt Date: 20230217
  Transmission Date: 20230417
  Serious: No
  Sender: FDA-Public Use
  Company Number: US-PFIZER INC-PV202300002137

PATIENT
  Age: 38 Year
  Sex: Female
  Weight: 61.224 kg

DRUGS (3)
  1. NURTEC ODT [Suspect]
     Active Substance: RIMEGEPANT SULFATE
     Indication: Migraine
     Dosage: 75 MG, AS NEEDED
     Route: 060
     Dates: start: 202204, end: 20221124
  2. ZYRTEC [Concomitant]
     Active Substance: CETIRIZINE HYDROCHLORIDE
     Indication: Hypersensitivity
  3. UNISOM [DOXYLAMINE SUCCINATE] [Concomitant]

REACTIONS (2)
  - Hepatic enzyme increased [Recovered/Resolved]
  - Fatigue [Recovered/Resolved]

NARRATIVE: CASE EVENT DATE: 20221001
